FAERS Safety Report 8085082-0 (Version None)
Quarter: 2012Q1

REPORT INFORMATION
  Report Type: 
  Country: None (occurrence: None)
  Receive Date: 20120128
  Receipt Date: 20110321
  Transmission Date: 20120608
  Serious: No
  Sender: FDA-Public Use
  Company Number: US-ABBOTT-11P-163-0713143-00

PATIENT
  Weight: 61.29 kg

DRUGS (3)
  1. SYNTHROID [Concomitant]
     Indication: HYPOTHYROIDISM
  2. HUMIRA [Suspect]
     Indication: PSORIASIS
     Dates: start: 20100601
  3. MULTI-VITAMIN [Concomitant]
     Indication: VITAMIN SUPPLEMENTATION

REACTIONS (2)
  - PSORIASIS [None]
  - INJECTION SITE HAEMATOMA [None]
